FAERS Safety Report 8224578 (Version 2)
Quarter: 2012Q4

REPORT INFORMATION
  Report Type: 
  Country: JP (occurrence: JP)
  Receive Date: 20111103
  Receipt Date: 20121122
  Transmission Date: 20130627
  Serious: Yes (Hospitalization, Other)
  Sender: FDA-Public Use
  Company Number: JP-AMGEN-JPNSP2010004131

PATIENT
  Age: 62 Year
  Sex: Male
  Weight: 57.1 kg

DRUGS (12)
  1. ENBREL [Suspect]
     Indication: RHEUMATOID ARTHRITIS
     Dosage: 25 mg, 2x/week
     Route: 058
     Dates: start: 20100629, end: 20101102
  2. HUMIRA [Suspect]
     Indication: RHEUMATOID ARTHRITIS
     Dosage: UNK
     Route: 058
     Dates: start: 20081127, end: 20100628
  3. RIMATIL [Suspect]
     Indication: RHEUMATOID ARTHRITIS
     Dosage: 100 mg, 2x/day
     Route: 048
     Dates: start: 1984, end: 20101102
  4. PREDONINE                          /00016201/ [Concomitant]
     Indication: INFLAMMATION
     Dosage: 5 mg, 1x/day
     Route: 048
     Dates: start: 1984
  5. VITAMIN D /00107901/ [Concomitant]
     Dosage: UNK
  6. TAGAMET                            /00397401/ [Concomitant]
     Indication: PROPHYLAXIS AGAINST GASTROINTESTINAL ULCER
     Dosage: 600 mg, 1x/day
     Route: 048
     Dates: start: 20020430, end: 20101110
  7. LOXONIN [Concomitant]
     Indication: INFLAMMATION
     Dosage: 120 mg, 1x/day
     Route: 048
     Dates: start: 2000
  8. SELBEX [Concomitant]
     Indication: PROPHYLAXIS AGAINST GASTROINTESTINAL ULCER
     Dosage: 150 mg, 1x/day
     Route: 048
     Dates: start: 20020430, end: 20101110
  9. ALFACALCIDOL [Concomitant]
     Indication: OSTEOPOROSIS PROPHYLAXIS
     Dosage: UNK
     Route: 048
     Dates: start: 20020430, end: 20101110
  10. ALINAMIN F                         /00257802/ [Concomitant]
     Indication: FATIGUE
     Dosage: 75 mg, 1x/day
     Route: 048
     Dates: start: 20040608, end: 20101110
  11. VOLTAREN                           /00372302/ [Concomitant]
     Indication: ANALGESIC THERAPY
     Dosage: UNK
  12. MOHRUS [Concomitant]
     Indication: ANALGESIC THERAPY
     Dosage: UNK
     Route: 062

REACTIONS (9)
  - Loss of consciousness [Unknown]
  - Injury [Recovered/Resolved]
  - Birth mark [Unknown]
  - Pyrexia [Unknown]
  - Infection [Recovered/Resolved]
  - Aplastic anaemia [Not Recovered/Not Resolved]
  - Pancytopenia [Not Recovered/Not Resolved]
  - Fall [Unknown]
  - Contusion [Unknown]
